FAERS Safety Report 17924321 (Version 3)
Quarter: 2023Q1

REPORT INFORMATION
  Report Type: Spontaneous
  Country: FR (occurrence: FR)
  Receive Date: 20200622
  Receipt Date: 20230110
  Transmission Date: 20230418
  Serious: Yes (Hospitalization)
  Sender: FDA-Public Use
  Company Number: None

PATIENT
  Age: 8 Month
  Sex: Male
  Weight: 7.22 kg

DRUGS (3)
  1. CLINDAMYCIN [Suspect]
     Active Substance: CLINDAMYCIN
     Indication: Antibiotic therapy
     Dosage: 100 MG (EVERY 8 HRS)
     Route: 042
     Dates: start: 20200403, end: 20200418
  2. CEFAZOLIN [Suspect]
     Active Substance: CEFAZOLIN
     Indication: Antibiotic therapy
     Dosage: 230 MG EVERY 8 HOURS
     Route: 042
     Dates: start: 20200406, end: 20200418
  3. CEFOTAXIME [Suspect]
     Active Substance: CEFOTAXIME SODIUM
     Indication: Antibiotic therapy
     Dosage: 350 MG EVERY 6 HOURS
     Route: 042
     Dates: start: 20200402, end: 20200406

REACTIONS (3)
  - Microcytic anaemia [Recovered/Resolved]
  - Coombs test positive [Recovered/Resolved]
  - Off label use [Unknown]

NARRATIVE: CASE EVENT DATE: 20200403
